FAERS Safety Report 21684053 (Version 1)
Quarter: 2022Q4

REPORT INFORMATION
  Report Type: Spontaneous
  Country: GB (occurrence: GB)
  Receive Date: 20221205
  Receipt Date: 20221205
  Transmission Date: 20230113
  Serious: Yes (Other)
  Sender: FDA-Public Use
  Company Number: GB-002147023-NVSC2022GB275383

PATIENT

DRUGS (5)
  1. RUXOLITINIB [Suspect]
     Active Substance: RUXOLITINIB
     Indication: Product used for unknown indication
     Dosage: 15 MG, BID
     Route: 065
     Dates: start: 201908
  2. RUXOLITINIB [Suspect]
     Active Substance: RUXOLITINIB
     Dosage: 20 MG, BID
     Route: 065
  3. RUXOLITINIB [Suspect]
     Active Substance: RUXOLITINIB
     Dosage: 25 MG, BID
     Route: 065
     Dates: start: 201908
  4. RUXOLITINIB [Suspect]
     Active Substance: RUXOLITINIB
     Dosage: 15 MG, BID
     Route: 065
     Dates: start: 202207
  5. RUXOLITINIB [Suspect]
     Active Substance: RUXOLITINIB
     Dosage: 20 MG, BID
     Route: 065

REACTIONS (16)
  - COVID-19 [Unknown]
  - Haemoglobin decreased [Unknown]
  - Pruritus [Unknown]
  - Platelet count decreased [Unknown]
  - Abdominal pain [Unknown]
  - Night sweats [Unknown]
  - Pain [Unknown]
  - Pyelonephritis [Unknown]
  - Sepsis [Unknown]
  - White blood cell count increased [Unknown]
  - Splenomegaly [Recovering/Resolving]
  - Splenic infarction [Unknown]
  - Treatment failure [Unknown]
  - Urinary tract infection [Unknown]
  - Serum ferritin increased [Unknown]
  - Anaemia [Unknown]

NARRATIVE: CASE EVENT DATE: 20191201
